FAERS Safety Report 11439899 (Version 1)
Quarter: 2015Q3

REPORT INFORMATION
  Report Type: Spontaneous
  Country: US (occurrence: US)
  Receive Date: 20150901
  Receipt Date: 20150901
  Transmission Date: 20151125
  Serious: No
  Sender: FDA-Public Use
  Company Number: US-ROCHE-1100172

PATIENT
  Sex: Male
  Weight: 88.08 kg

DRUGS (1)
  1. PEGASYS [Suspect]
     Active Substance: PEGINTERFERON ALFA-2A
     Indication: PRODUCT USED FOR UNKNOWN INDICATION
     Route: 065

REACTIONS (17)
  - Fatigue [Unknown]
  - Emotional disorder [Unknown]
  - Decreased appetite [Unknown]
  - Blood pressure decreased [Unknown]
  - Constipation [Unknown]
  - Anal pruritus [Unknown]
  - Bowel movement irregularity [Unknown]
  - Incorrect product storage [Unknown]
  - Faeces hard [Unknown]
  - Somnolence [Unknown]
  - Rash [Unknown]
  - Headache [Unknown]
  - Asthenia [Unknown]
  - Irritability [Unknown]
  - Weight decreased [Unknown]
  - Viral load increased [Unknown]
  - Proctalgia [Unknown]
